FAERS Safety Report 10528286 (Version 1)
Quarter: 2014Q4

REPORT INFORMATION
  Report Type: Spontaneous
  Country: IT (occurrence: IT)
  Receive Date: 20141020
  Receipt Date: 20141020
  Transmission Date: 20150528
  Serious: Yes (Hospitalization)
  Sender: FDA-Public Use
  Company Number: IT-TEVA-515228ISR

PATIENT
  Age: 2 Year
  Sex: Female

DRUGS (1)
  1. LORAZEPAM DOROM [Suspect]
     Active Substance: LORAZEPAM
     Indication: ACCIDENTAL EXPOSURE TO PRODUCT BY CHILD
     Dosage: 4 ML DAILY;
     Dates: start: 20101204, end: 20101204

REACTIONS (2)
  - Drug administration error [Recovered/Resolved]
  - Sopor [Recovered/Resolved]

NARRATIVE: CASE EVENT DATE: 20101204
